FAERS Safety Report 8805227 (Version 1)
Quarter: 2012Q4

REPORT INFORMATION
  Report Type: Spontaneous
  Country: DK (occurrence: None)
  Receive Date: 20120917
  Receipt Date: 20120917
  Transmission Date: 20130627
  Serious: Yes (Hospitalization)
  Sender: FDA-Public Use
  Company Number: 2012MA011192

PATIENT
  Age: 58 Year
  Sex: Male

DRUGS (5)
  1. GABAPENTIN [Suspect]
     Indication: DRUG USE FOR UNKNOWN INDICATION
     Route: 048
     Dates: start: 20081113, end: 20120507
  2. TRAMADOL [Suspect]
     Indication: DRUG USE FOR UNKNOWN INDICATION
     Route: 048
  3. PALEXIA [Suspect]
     Indication: CHRONIC PAIN
     Route: 048
     Dates: start: 20120110, end: 20120502
  4. POSTAFEN /00060202/ [Concomitant]
  5. FENTANYL [Concomitant]

REACTIONS (6)
  - Serotonin syndrome [None]
  - Disorientation [None]
  - Fatigue [None]
  - Alkalosis [None]
  - Pleocytosis [None]
  - Diarrhoea [None]
